FAERS Safety Report 8983667 (Version 1)
Quarter: 2012Q4

REPORT INFORMATION
  Report Type: 
  Country: FR (occurrence: FR)
  Receive Date: 20121224
  Receipt Date: 20121224
  Transmission Date: 20130627
  Serious: Yes (Hospitalization)
  Sender: FDA-Public Use
  Company Number: FR-BRISTOL-MYERS SQUIBB COMPANY-17217399

PATIENT
  Age: 79 Year
  Sex: Male

DRUGS (7)
  1. COUMADIN TABS [Suspect]
     Indication: ATRIAL FIBRILLATION
     Route: 048
     Dates: end: 20121005
  2. KARDEGIC [Suspect]
     Dosage: Interrupted on 5Oct12
     Route: 048
  3. PRAVASTATINE [Concomitant]
  4. FLECAINE [Concomitant]
     Dosage: 1df= 100
  5. AMLOR [Concomitant]
     Dosage: 1 df= 5 unit nos
  6. STAGID [Concomitant]
     Dosage: 700
  7. PRETERAX [Concomitant]

REACTIONS (2)
  - Extradural haematoma [Recovered/Resolved]
  - Fall [Recovered/Resolved]
